FAERS Safety Report 19768993 (Version 1)
Quarter: 2021Q3

REPORT INFORMATION
  Report Type: Spontaneous
  Country: DE (occurrence: DE)
  Receive Date: 20210831
  Receipt Date: 20210831
  Transmission Date: 20211014
  Serious: Yes (Other)
  Sender: FDA-Public Use
  Company Number: NVSC2021DE195790

PATIENT
  Sex: Female

DRUGS (3)
  1. CEFPODOXIM HEXAL 200 MG FILMTABLETTEN [Suspect]
     Active Substance: CEFPODOXIME PROXETIL
     Indication: INFLAMMATION
  2. CEFPODOXIM HEXAL 200 MG FILMTABLETTEN [Suspect]
     Active Substance: CEFPODOXIME PROXETIL
     Indication: PELVIC INFLAMMATORY DISEASE
  3. CEFPODOXIM HEXAL 200 MG FILMTABLETTEN [Suspect]
     Active Substance: CEFPODOXIME PROXETIL
     Indication: CYSTITIS NONINFECTIVE
     Dosage: 1 DF, BID
     Route: 065
     Dates: start: 20210816, end: 20210819

REACTIONS (2)
  - Blood pressure increased [Recovering/Resolving]
  - Renal pain [Recovering/Resolving]

NARRATIVE: CASE EVENT DATE: 20210818
